FAERS Safety Report 7435795-6 (Version None)
Quarter: 2011Q2

REPORT INFORMATION
  Report Type: 
  Country: None (occurrence: None)
  Receive Date: 20110418
  Receipt Date: 20110401
  Transmission Date: 20111010
  Serious: Yes (Other)
  Sender: FDA-Public Use
  Company Number: AE 2011-155

PATIENT
  Age: 40 Year
  Sex: Female

DRUGS (1)
  1. CLOZAPINE [Suspect]

REACTIONS (5)
  - ASPIRATION [None]
  - PAIN [None]
  - INTESTINAL GANGRENE [None]
  - NAUSEA [None]
  - VOMITING [None]
